FAERS Safety Report 20369440 (Version 1)
Quarter: 2022Q1

REPORT INFORMATION
  Report Type: Spontaneous
  Country: FR (occurrence: FR)
  Receive Date: 20220124
  Receipt Date: 20220124
  Transmission Date: 20220424
  Serious: Yes (Other)
  Sender: FDA-Public Use
  Company Number: None

PATIENT
  Age: 31 Year
  Sex: Female

DRUGS (2)
  1. COTRIMOXAZOLE [Suspect]
     Active Substance: SULFAMETHOXAZOLE\TRIMETHOPRIM
     Indication: Prophylaxis
     Dosage: 1D/2 COTRIMOXAZOLE  TEVA, THERAPHY START DATE 28-NOV-2021 AND END DATE 02-DEC-2021
     Route: 048
     Dates: start: 20211128, end: 20211202
  2. TRAMADOL [Suspect]
     Active Substance: TRAMADOL
     Indication: Pain
     Dosage: TRAMADOL (CHLORHYDRATE DE) THERAPHY START DATE 29-NOV-2021 + END DATE 03-DEC-2021
     Route: 048
     Dates: start: 20211129, end: 20211203

REACTIONS (1)
  - Toxic skin eruption [Recovered/Resolved]

NARRATIVE: CASE EVENT DATE: 20211203
